FAERS Safety Report 4718968-2 (Version None)
Quarter: 2005Q3

REPORT INFORMATION
  Report Type: 
  Country: None (occurrence: None)
  Receive Date: 20050719
  Receipt Date: 20050712
  Transmission Date: 20060218
  Serious: Yes (Death, Hospitalization)
  Sender: FDA-Public Use
  Company Number: 2005024856

PATIENT
  Age: 63 Year
  Sex: Male
  Weight: 60 kg

DRUGS (8)
  1. IRINOTECAN HYDROCHLORIDE SOLUTION [Suspect]
     Indication: SMALL CELL LUNG CANCER STAGE UNSPECIFIED
     Dosage: 136 MG (136 MG, CYCLIC, 3 WEEKLY), INTRAVENEOUS
     Route: 042
     Dates: start: 20040529, end: 20040804
  2. CISPLATIN [Suspect]
     Indication: SMALL CELL LUNG CANCER STAGE UNSPECIFIED
     Dosage: 136 MG (136 MG, CYCLIC, 3 WEEKLY), INTRAVENOUS
     Route: 042
     Dates: start: 20040529, end: 20040728
  3. VIOXX [Concomitant]
  4. TRAMADOL HCL [Concomitant]
  5. BISOPROLOL FUMARATE [Concomitant]
  6. MORPHINE SULFATE [Concomitant]
  7. ALLOPURINOL [Concomitant]
  8. THIOCTACID (THIOCTIC ACID) [Concomitant]

REACTIONS (3)
  - CONVULSION [None]
  - DISEASE PROGRESSION [None]
  - LOSS OF CONSCIOUSNESS [None]
